FAERS Safety Report 6305204-9 (Version None)
Quarter: 2009Q3

REPORT INFORMATION
  Report Type: 
  Country: None (occurrence: None)
  Receive Date: 20090810
  Receipt Date: 20090810
  Transmission Date: 20100115
  Serious: No
  Sender: FDA-Public Use
  Company Number: None

PATIENT
  Sex: Female
  Weight: 56.246 kg

DRUGS (2)
  1. BONIVA [Suspect]
     Indication: OSTEOPENIA
     Dosage: 150MG 1X MONTHLY FOR 3 MONTHS 2008
     Dates: start: 20080101, end: 20080301
  2. ALENDRONATE SODIUM [Suspect]
     Dosage: 75 MG FOR 3/4 MONTHS 2008
     Dates: start: 20080401, end: 20080601

REACTIONS (8)
  - ANXIETY [None]
  - EYE PAIN [None]
  - GAIT DISTURBANCE [None]
  - MUSCULOSKELETAL PAIN [None]
  - OCULAR HYPERAEMIA [None]
  - PAIN IN EXTREMITY [None]
  - SCLERITIS [None]
  - STRESS [None]
